FAERS Safety Report 9448011 (Version 2)
Quarter: 2013Q3

REPORT INFORMATION
  Report Type: Spontaneous
  Country: MX (occurrence: None)
  Receive Date: 20130806
  Receipt Date: 20130821
  Transmission Date: 20140515
  Serious: Yes (Other)
  Sender: FDA-Public Use
  Company Number: 2013P1013481

PATIENT
  Age: 15 Year
  Sex: Female

DRUGS (2)
  1. SULFAMETHOXAZOLE AND TRIMETHOPRIM [Suspect]
     Indication: PYREXIA
  2. SULFAMETHOXAZOLE AND TRIMETHOPRIM [Suspect]
     Indication: OROPHARYNGEAL PAIN

REACTIONS (3)
  - Drug eruption [None]
  - Vulval ulceration [None]
  - Drug hypersensitivity [None]
